FAERS Safety Report 13692760 (Version 1)
Quarter: 2017Q2

REPORT INFORMATION
  Report Type: Spontaneous
  Country: US (occurrence: US)
  Receive Date: 20170627
  Receipt Date: 20170627
  Transmission Date: 20170830
  Serious: No
  Sender: FDA-Public Use
  Company Number: US-BEH-2017081666

PATIENT
  Age: 21 Year
  Sex: Male

DRUGS (15)
  1. ONDANSETRON [Concomitant]
     Active Substance: ONDANSETRON
     Route: 065
  2. PROAIR HFA [Concomitant]
     Active Substance: ALBUTEROL SULFATE
     Route: 065
  3. FLUTICASONE PROPIONATE. [Concomitant]
     Active Substance: FLUTICASONE PROPIONATE
     Route: 065
  4. SULFAMETHOXAZOLE [Concomitant]
     Active Substance: SULFAMETHOXAZOLE
     Route: 065
  5. MYCOPHENOLATE SODIUM [Concomitant]
     Active Substance: MYCOPHENOLATE SODIUM
     Route: 065
  6. PREDNISONE. [Concomitant]
     Active Substance: PREDNISONE
     Route: 065
  7. CEFDINIR. [Concomitant]
     Active Substance: CEFDINIR
     Route: 065
  8. HIZENTRA [Suspect]
     Active Substance: HUMAN IMMUNOGLOBULIN G
     Indication: IMMUNODEFICIENCY COMMON VARIABLE
     Dosage: 18 G, QOW
     Route: 058
     Dates: start: 2015
  9. TAMIFLU [Concomitant]
     Active Substance: OSELTAMIVIR PHOSPHATE
     Route: 065
  10. RANITIDINE                         /00550802/ [Concomitant]
     Route: 065
  11. PENICILLIN                         /00000901/ [Concomitant]
     Active Substance: PENICILLIN G
     Route: 065
  12. APRISO [Concomitant]
     Active Substance: MESALAMINE
     Route: 065
  13. AMOXICILLIN. [Concomitant]
     Active Substance: AMOXICILLIN
     Route: 065
  14. PULMOZYME [Concomitant]
     Active Substance: DORNASE ALFA
     Route: 065
  15. OSELTAMIVIR PHOSPHATE. [Concomitant]
     Active Substance: OSELTAMIVIR PHOSPHATE
     Route: 065

REACTIONS (6)
  - Infusion site swelling [Unknown]
  - Infusion site pain [Unknown]
  - Cough [Unknown]
  - Pyrexia [Unknown]
  - Headache [Unknown]
  - Migraine [Unknown]

NARRATIVE: CASE EVENT DATE: 2015
